FAERS Safety Report 23159952 (Version 1)
Quarter: 2023Q4

REPORT INFORMATION
  Report Type: Spontaneous
  Country: CN (occurrence: None)
  Receive Date: 20231108
  Receipt Date: 20231108
  Transmission Date: 20240110
  Serious: Yes (Hospitalization, Other)
  Sender: FDA-Public Use
  Company Number: 2023A250316

PATIENT
  Age: 23714 Day
  Sex: Female

DRUGS (2)
  1. TAGRISSO [Suspect]
     Active Substance: OSIMERTINIB
     Indication: Lung adenocarcinoma
     Route: 048
     Dates: start: 20231009, end: 20231017
  2. PEMETREXED DISODIUM [Suspect]
     Active Substance: PEMETREXED DISODIUM
     Indication: Lung adenocarcinoma
     Route: 041
     Dates: start: 20231016, end: 20231016

REACTIONS (8)
  - Myelosuppression [Recovering/Resolving]
  - Fatigue [Unknown]
  - Pyrexia [Unknown]
  - Nausea [Unknown]
  - Vomiting [Unknown]
  - Decreased appetite [Unknown]
  - Dyspnoea [Unknown]
  - Malignant neoplasm progression [Unknown]

NARRATIVE: CASE EVENT DATE: 20231023
